FAERS Safety Report 5578046-X (Version None)
Quarter: 2007Q4

REPORT INFORMATION
  Report Type: 
  Country: None (occurrence: None)
  Receive Date: 20071227
  Receipt Date: 20071221
  Transmission Date: 20080405
  Serious: Yes (Life-Threatening, Hospitalization)
  Sender: FDA-Public Use
  Company Number: TCI2007A05728

PATIENT
  Age: 74 Year
  Sex: Female

DRUGS (7)
  1. LANSOPRAZOLE [Suspect]
     Indication: GASTRITIS ATROPHIC
     Dosage: 15 MG (15 MG, 1 IN 1 D), PER ORAL
     Route: 048
     Dates: start: 20070704, end: 20070920
  2. LANSOPRAZOLE [Suspect]
     Indication: HIATUS HERNIA
     Dosage: 15 MG (15 MG, 1 IN 1 D), PER ORAL
     Route: 048
     Dates: start: 20070704, end: 20070920
  3. THYRADIN POWDER (THYROID)(POWDER) [Concomitant]
  4. JOLETHIN (IODOLECITHIN)(TABLETS) [Concomitant]
  5. SELEBEX (TEPRENONE) (FINE GRANULES) [Concomitant]
  6. MECLOCELIN (AMBROXOL HYDROCHLORIDE)(TABLETS) [Concomitant]
  7. INDERAL (PROPRANOLOL HYDROCHLORIDE)(TABLETS) [Concomitant]

REACTIONS (8)
  - CONVULSION [None]
  - DRUG RASH WITH EOSINOPHILIA AND SYSTEMIC SYMPTOMS [None]
  - GENERALISED ERYTHEMA [None]
  - LOSS OF CONSCIOUSNESS [None]
  - NEPHROGENIC ANAEMIA [None]
  - PHARYNGOLARYNGEAL PAIN [None]
  - RENAL FAILURE ACUTE [None]
  - RHABDOMYOLYSIS [None]
